APPROVED DRUG PRODUCT: EFINACONAZOLE
Active Ingredient: EFINACONAZOLE
Strength: 10%
Dosage Form/Route: SOLUTION;TOPICAL
Application: A212066 | Product #001
Applicant: AUROBINDO PHARMA LTD
Approved: Mar 29, 2021 | RLD: No | RS: No | Type: DISCN